FAERS Safety Report 11927814 (Version 1)
Quarter: 2016Q1

REPORT INFORMATION
  Report Type: Report from Study
  Country: IT (occurrence: IT)
  Receive Date: 20160119
  Receipt Date: 20160119
  Transmission Date: 20160526
  Serious: Yes (Hospitalization)
  Sender: FDA-Public Use
  Company Number: IT-TEVA-625497ACC

PATIENT
  Age: 32 Year
  Sex: Female

DRUGS (1)
  1. VINCRISTINA TEVA ITALIA - 1 MG/ML SOLUZIONE INIETTABILE - TEVA ITALIA [Suspect]
     Active Substance: VINCRISTINE
     Indication: ACUTE LEUKAEMIA
     Dosage: 2 MG WEEKLY
     Route: 042
     Dates: start: 20151201, end: 20151215

REACTIONS (1)
  - Intestinal obstruction [Recovered/Resolved]

NARRATIVE: CASE EVENT DATE: 20151221
